FAERS Safety Report 8566459-3 (Version None)
Quarter: 2012Q3

REPORT INFORMATION
  Report Type: 
  Country: None (occurrence: None)
  Receive Date: 20120730
  Receipt Date: 20120730
  Transmission Date: 20120928
  Serious: Yes (Hospitalization)
  Sender: FDA-Public Use
  Company Number: None

PATIENT
  Sex: Male
  Weight: 104 kg

DRUGS (4)
  1. ERBITUX [Suspect]
     Dosage: 537 MG
  2. BEVACIZUMAB (RHUMAB VEGF) [Suspect]
     Dosage: 1572 MG
  3. CARBOPLATIN [Suspect]
     Dosage: 900 MG
  4. TAXOL [Suspect]
     Dosage: 462 MG

REACTIONS (3)
  - DEHYDRATION [None]
  - STAPHYLOCOCCAL BACTERAEMIA [None]
  - BLOOD SODIUM DECREASED [None]
